FAERS Safety Report 5688681-6 (Version None)
Quarter: 2008Q1

REPORT INFORMATION
  Report Type: 
  Country: None (occurrence: None)
  Receive Date: 20080331
  Receipt Date: 20080317
  Transmission Date: 20080703
  Serious: Yes (Hospitalization, Disabling, Other)
  Sender: FDA-Public Use
  Company Number: US-MERCK-0802USA01329

PATIENT
  Age: 76 Year
  Sex: Female

DRUGS (4)
  1. FOSAMAX [Suspect]
     Indication: OSTEOPOROSIS
     Route: 048
     Dates: start: 20080124, end: 20080124
  2. SINGULAIR [Concomitant]
     Route: 048
  3. PREDNISONE [Concomitant]
     Route: 065
  4. ALBUTEROL [Concomitant]
     Route: 065

REACTIONS (2)
  - DIARRHOEA HAEMORRHAGIC [None]
  - MALAISE [None]
